FAERS Safety Report 7245309-1 (Version None)
Quarter: 2011Q1

REPORT INFORMATION
  Report Type: 
  Country: None (occurrence: None)
  Receive Date: 20110126
  Receipt Date: 20110114
  Transmission Date: 20110831
  Serious: Yes (Other)
  Sender: FDA-Public Use
  Company Number: CN-ROCHE-749303

PATIENT
  Age: 70 Year
  Sex: Male

DRUGS (2)
  1. FOLFOX REGIMEN [Concomitant]
     Indication: GASTROINTESTINAL CANCER METASTATIC
  2. AVASTIN [Suspect]
     Indication: GASTROINTESTINAL CANCER METASTATIC
     Route: 065

REACTIONS (4)
  - HYDRONEPHROSIS [None]
  - URETERIC OBSTRUCTION [None]
  - RENAL ATROPHY [None]
  - URETERIC DILATATION [None]
